FAERS Safety Report 6506402-1 (Version None)
Quarter: 2009Q4

REPORT INFORMATION
  Report Type: 
  Country: None (occurrence: None)
  Receive Date: 20091218
  Receipt Date: 20091208
  Transmission Date: 20100525
  Serious: Yes (Other)
  Sender: FDA-Public Use
  Company Number: JP-BRISTOL-MYERS SQUIBB COMPANY-14369227

PATIENT
  Age: 32 Year
  Sex: Female
  Weight: 43 kg

DRUGS (1)
  1. ABILIFY [Suspect]
     Indication: SCHIZOPHRENIA
     Route: 048
     Dates: start: 20070424, end: 20090318

REACTIONS (3)
  - NORMAL NEWBORN [None]
  - PREGNANCY [None]
  - THREATENED LABOUR [None]
